FAERS Safety Report 20903965 (Version 3)
Quarter: 2022Q4

REPORT INFORMATION
  Report Type: Report from Study
  Country: BR (occurrence: BR)
  Receive Date: 20220602
  Receipt Date: 20221109
  Transmission Date: 20230113
  Serious: Yes (Hospitalization, Other)
  Sender: FDA-Public Use
  Company Number: BR-JNJFOC-20180704591

PATIENT
  Age: 77 Year
  Sex: Male
  Weight: 64 kg

DRUGS (9)
  1. INFLIXIMAB [Suspect]
     Active Substance: INFLIXIMAB
     Indication: Rheumatoid arthritis
     Route: 041
  2. INFLIXIMAB [Suspect]
     Active Substance: INFLIXIMAB
     Dates: start: 20090828
  3. REMICADE [Suspect]
     Active Substance: INFLIXIMAB
     Indication: Rheumatoid arthritis
     Dosage: 1-2 VIALS
     Route: 041
     Dates: start: 20090828, end: 2020
  4. FINASTERIDE [Concomitant]
     Active Substance: FINASTERIDE
  5. PROMETHAZINE [Concomitant]
     Active Substance: PROMETHAZINE HYDROCHLORIDE
  6. DICLOFENAC [Concomitant]
     Active Substance: DICLOFENAC
  7. MELOXICAM [Concomitant]
     Active Substance: MELOXICAM
  8. DECADRON [Concomitant]
     Active Substance: DEXAMETHASONE
  9. DOXAZOSIN [Concomitant]
     Active Substance: DOXAZOSIN MESYLATE

REACTIONS (10)
  - Erysipelas [Recovered/Resolved]
  - Facial paralysis [Recovered/Resolved]
  - Cataract [Recovering/Resolving]
  - Visual impairment [Unknown]
  - Rheumatoid arthritis [Unknown]
  - Memory impairment [Unknown]
  - Headache [Recovered/Resolved]
  - Weight increased [Unknown]
  - Product availability issue [Unknown]
  - Off label use [Unknown]

NARRATIVE: CASE EVENT DATE: 20180601
